FAERS Safety Report 11114461 (Version 1)
Quarter: 2015Q2

REPORT INFORMATION
  Report Type: Report from Study
  Country: GB (occurrence: GB)
  Receive Date: 20150515
  Receipt Date: 20150515
  Transmission Date: 20150821
  Serious: Yes (Hospitalization)
  Sender: FDA-Public Use
  Company Number: GB-ROCHE-1080613

PATIENT
  Age: 50 Year
  Sex: Female
  Weight: 84 kg

DRUGS (4)
  1. EPIRUBICIN [Suspect]
     Active Substance: EPIRUBICIN
     Indication: GASTRIC CANCER
     Dosage: DATE OF MOST RECENT ADMINISTRATION: 01/MAY/2012
     Route: 042
     Dates: start: 20120410
  2. CAPECITABINE. [Suspect]
     Active Substance: CAPECITABINE
     Indication: GASTRIC CANCER
     Dosage: DOSE:48300 MG, DATE OF MOST RECENT ADMINISTRATION: 29/MAY/2012
     Route: 048
     Dates: start: 20120410
  3. BEVACIZUMAB [Suspect]
     Active Substance: BEVACIZUMAB
     Indication: GASTRIC CANCER
     Dosage: DOSE: 625 MG, DATE OF MOST RECENT ADMINISTRATION: 29/MAY/2012
     Route: 042
     Dates: start: 20120410
  4. CISPLATIN. [Suspect]
     Active Substance: CISPLATIN
     Indication: GASTRIC CANCER
     Dosage: DATE OF MOST RECENT ADMINISTRATION: 01/MAY/2012
     Route: 042
     Dates: start: 20120410

REACTIONS (2)
  - Cholecystitis [Not Recovered/Not Resolved]
  - Failure to anastomose [Recovered/Resolved with Sequelae]

NARRATIVE: CASE EVENT DATE: 20120518
